FAERS Safety Report 24157948 (Version 1)
Quarter: 2024Q3

REPORT INFORMATION
  Report Type: Spontaneous
  Country: US (occurrence: US)
  Receive Date: 20240731
  Receipt Date: 20240731
  Transmission Date: 20241017
  Serious: No
  Sender: SANOFI AVENTIS
  Company Number: US-SA-SAC20240725000224

PATIENT
  Age: 29 Year
  Sex: Female

DRUGS (1)
  1. DUPIXENT [Suspect]
     Active Substance: DUPILUMAB
     Indication: Asthma
     Dosage: 300MG, QOW
     Route: 058
     Dates: start: 202303

REACTIONS (9)
  - Ear pain [Unknown]
  - Skin discolouration [Unknown]
  - Rash pruritic [Unknown]
  - Scratch [Unknown]
  - Haemorrhage [Unknown]
  - Infectious mononucleosis [Recovering/Resolving]
  - Streptococcal infection [Recovering/Resolving]
  - Contusion [Unknown]
  - Rash [Unknown]
